FAERS Safety Report 19766581 (Version 1)
Quarter: 2021Q3

REPORT INFORMATION
  Report Type: Spontaneous
  Country: US (occurrence: US)
  Receive Date: 20210830
  Receipt Date: 20210830
  Transmission Date: 20211014
  Serious: Yes (Other)
  Sender: FDA-Public Use
  Company Number: US-PFIZER INC-202101070981

PATIENT
  Age: 54 Year
  Sex: Female

DRUGS (22)
  1. HYDROXYCHLOROQUINE SULFATE. [Concomitant]
     Active Substance: HYDROXYCHLOROQUINE SULFATE
  2. NOVOLOG [Concomitant]
     Active Substance: INSULIN ASPART
  3. HUMALOG HD KWIKPEN [Concomitant]
  4. PREGABALIN. [Concomitant]
     Active Substance: PREGABALIN
  5. GABAPENTIN. [Concomitant]
     Active Substance: GABAPENTIN
  6. VIT D [COLECALCIFEROL] [Concomitant]
  7. ISONIAZID. [Concomitant]
     Active Substance: ISONIAZID
  8. TEMAZEPAM. [Concomitant]
     Active Substance: TEMAZEPAM
  9. PREDNISONE. [Concomitant]
     Active Substance: PREDNISONE
  10. NAPROXEN. [Concomitant]
     Active Substance: NAPROXEN
  11. TRAMADOL HYDROCHLORIDE. [Concomitant]
     Active Substance: TRAMADOL HYDROCHLORIDE
  12. DULOXETINE HYDROCHLORIDE. [Concomitant]
     Active Substance: DULOXETINE HYDROCHLORIDE
  13. FAMOTIDINE. [Concomitant]
     Active Substance: FAMOTIDINE
  14. LANTUS [Concomitant]
     Active Substance: INSULIN GLARGINE
  15. ORENCIA [Concomitant]
     Active Substance: ABATACEPT
  16. RANITIDINE HYDROCHLORIDE. [Concomitant]
     Active Substance: RANITIDINE HYDROCHLORIDE
  17. XIFAXAN [Concomitant]
     Active Substance: RIFAXIMIN
  18. CITALOPRAM HYDROBROMIDE. [Concomitant]
     Active Substance: CITALOPRAM HYDROBROMIDE
  19. QUETIAPINE FUMARATE. [Concomitant]
     Active Substance: QUETIAPINE FUMARATE
  20. KEVZARA [Concomitant]
     Active Substance: SARILUMAB
  21. XELJANZ XR [Suspect]
     Active Substance: TOFACITINIB CITRATE
     Dosage: 11 MG, DAILY
     Route: 048
  22. VITAMIN C [Concomitant]
     Active Substance: ASCORBIC ACID

REACTIONS (1)
  - Hepatic cirrhosis [Unknown]
